FAERS Safety Report 6806940-8 (Version None)
Quarter: 2010Q2

REPORT INFORMATION
  Report Type: 
  Country: None (occurrence: None)
  Receive Date: 20100629
  Receipt Date: 20080602
  Transmission Date: 20101027
  Serious: Yes (Other)
  Sender: FDA-Public Use
  Company Number: US-PFIZER INC-2008046619

PATIENT
  Sex: Female
  Weight: 44.09 kg

DRUGS (2)
  1. ARTHROTEC [Suspect]
     Indication: ARTHRITIS
     Dosage: 75/0.2 MG
     Dates: start: 20071001, end: 20080527
  2. PRINIVIL [Concomitant]
     Indication: HYPERTENSION

REACTIONS (1)
  - RECTAL HAEMORRHAGE [None]
